FAERS Safety Report 17703550 (Version 1)
Quarter: 2020Q2

REPORT INFORMATION
  Report Type: Spontaneous
  Country: AT (occurrence: AT)
  Receive Date: 20200424
  Receipt Date: 20200424
  Transmission Date: 20200714
  Serious: Yes (Other)
  Sender: FDA-Public Use
  Company Number: NVSC2020AT108439

PATIENT
  Age: 1 Year
  Sex: Female

DRUGS (5)
  1. CYCLOPHOSPHAMIDE. [Suspect]
     Active Substance: CYCLOPHOSPHAMIDE
     Indication: EPENDYMOMA MALIGNANT
     Dosage: HIT-SKK (CYCLOPHOSPHAMIDE/VINCRISTINE, METHOTREXATE/VINCRISTINE, CARBOPLATIN/ETOPOSIDE)
     Route: 065
  2. VINCRISTINE [Suspect]
     Active Substance: VINCRISTINE
     Indication: EPENDYMOMA MALIGNANT
     Dosage: HIT-SKK (CYCLOPHOSPHAMIDE/VINCRISTINE, METHOTREXATE/VINCRISTINE, CARBOPLATIN/ETOPOSIDE)
     Route: 065
  3. METHOTREXATE. [Suspect]
     Active Substance: METHOTREXATE
     Indication: EPENDYMOMA MALIGNANT
     Dosage: HIT-SKK (CYCLOPHOSPHAMIDE/VINCRISTINE, METHOTREXATE/VINCRISTINE, CARBOPLATIN/ETOPOSIDE)
     Route: 065
  4. CARBOPLATIN. [Suspect]
     Active Substance: CARBOPLATIN
     Indication: EPENDYMOMA MALIGNANT
     Dosage: HIT-SKK (CYCLOPHOSPHAMIDE/VINCRISTINE, METHOTREXATE/VINCRISTINE, CARBOPLATIN/ETOPOSIDE)
     Route: 065
  5. ETOPOSIDE. [Suspect]
     Active Substance: ETOPOSIDE
     Indication: EPENDYMOMA MALIGNANT
     Dosage: HIT-SKK (CYCLOPHOSPHAMIDE/VINCRISTINE, METHOTREXATE/VINCRISTINE, CARBOPLATIN/ETOPOSIDE)
     Route: 065

REACTIONS (2)
  - Malignant neoplasm progression [Unknown]
  - Product use in unapproved indication [Unknown]
